FAERS Safety Report 12391355 (Version 1)
Quarter: 2016Q2

REPORT INFORMATION
  Report Type: Spontaneous
  Country: US (occurrence: US)
  Receive Date: 20160520
  Receipt Date: 20160520
  Transmission Date: 20160815
  Serious: No
  Sender: FDA-Public Use
  Company Number: US-TAKEDA-2015TUS007085

PATIENT
  Age: 85 Year
  Sex: Male
  Weight: 72.56 kg

DRUGS (2)
  1. ULORIC [Suspect]
     Active Substance: FEBUXOSTAT
     Indication: PRODUCT USED FOR UNKNOWN INDICATION
     Dosage: UNK, QD
     Route: 048
     Dates: start: 201504, end: 201504
  2. ULORIC [Suspect]
     Active Substance: FEBUXOSTAT
     Dosage: UNK, QD
     Route: 048
     Dates: start: 201504, end: 201504

REACTIONS (1)
  - Urinary incontinence [Recovered/Resolved]

NARRATIVE: CASE EVENT DATE: 201504
